FAERS Safety Report 19209828 (Version 1)
Quarter: 2021Q2

REPORT INFORMATION
  Report Type: Spontaneous
  Country: US (occurrence: US)
  Receive Date: 20210504
  Receipt Date: 20210504
  Transmission Date: 20210717
  Serious: No
  Sender: FDA-Public Use
  Company Number: US-FARMAPROD-202103-0361

PATIENT
  Sex: Female

DRUGS (9)
  1. ZINC. [Concomitant]
     Active Substance: ZINC
  2. PREDNISOLON [Concomitant]
     Active Substance: PREDNISOLONE
  3. ACYCLOVIR. [Concomitant]
     Active Substance: ACYCLOVIR
  4. OXERVATE [Suspect]
     Active Substance: CENEGERMIN-BKBJ
     Indication: NEUROTROPHIC KERATOPATHY
     Route: 047
     Dates: start: 20210302
  5. CARVEDILOL. [Concomitant]
     Active Substance: CARVEDILOL
  6. LISINOPRIL/HYDROCHLORTIAZIDE [Concomitant]
  7. PROAIR HFA [Concomitant]
     Active Substance: ALBUTEROL SULFATE
  8. TIMOLOL. [Concomitant]
     Active Substance: TIMOLOL
  9. VITAMINE C [Concomitant]
     Active Substance: ASCORBIC ACID

REACTIONS (1)
  - Eye swelling [Unknown]
